FAERS Safety Report 19574664 (Version 1)
Quarter: 2021Q3

REPORT INFORMATION
  Report Type: Spontaneous
  Country: PT (occurrence: PT)
  Receive Date: 20210719
  Receipt Date: 20210719
  Transmission Date: 20211014
  Serious: Yes (Other)
  Sender: FDA-Public Use
  Company Number: PT-ORGANON-O2107PRT001148

PATIENT
  Age: 43 Year
  Sex: Female
  Weight: 68 kg

DRUGS (1)
  1. IMPLANON NXT [Suspect]
     Active Substance: ETONOGESTREL
     Indication: CONTRACEPTION
     Dosage: 68 MILLIGRAM, 1 APPLICATION [INSERTION] ? DURATION 3 YEARS
     Route: 058
     Dates: start: 20181220

REACTIONS (2)
  - Therapeutic product ineffective [Recovered/Resolved with Sequelae]
  - Pregnancy with implant contraceptive [Recovered/Resolved with Sequelae]

NARRATIVE: CASE EVENT DATE: 20210505
